FAERS Safety Report 8501341-9 (Version None)
Quarter: 2012Q3

REPORT INFORMATION
  Report Type: 
  Country: None (occurrence: None)
  Receive Date: 20120710
  Receipt Date: 20120629
  Transmission Date: 20120928
  Serious: No
  Sender: FDA-Public Use
  Company Number: US-TEVA-346226USA

PATIENT
  Sex: Male

DRUGS (2)
  1. FLOMAX [Suspect]
     Route: 048
  2. NUVIGIL [Suspect]
     Indication: SLEEP APNOEA SYNDROME
     Dosage: QAM
     Route: 048

REACTIONS (2)
  - INITIAL INSOMNIA [None]
  - SEXUAL DYSFUNCTION [None]
